FAERS Safety Report 9354749 (Version 1)
Quarter: 2013Q2

REPORT INFORMATION
  Report Type: Spontaneous
  Country: US (occurrence: US)
  Receive Date: 20130619
  Receipt Date: 20130619
  Transmission Date: 20140414
  Serious: Yes (Other)
  Sender: FDA-Public Use
  Company Number: US-009507513-1306USA006034

PATIENT
  Age: 31 Year
  Sex: Female

DRUGS (5)
  1. IMPLANON [Suspect]
     Indication: CONTRACEPTION
     Dosage: 68MG / ONE ROD EVERY THREE YEARS
     Route: 059
     Dates: start: 20110328
  2. EFFEXOR XR [Concomitant]
  3. TOPAMAX [Concomitant]
  4. VYVANSE [Concomitant]
  5. XANAX [Concomitant]

REACTIONS (2)
  - Abortion [Unknown]
  - Unintended pregnancy [Recovered/Resolved]
